FAERS Safety Report 6739592-6 (Version None)
Quarter: 2010Q2

REPORT INFORMATION
  Report Type: 
  Country: None (occurrence: None)
  Receive Date: 20100521
  Receipt Date: 20100510
  Transmission Date: 20101027
  Serious: Yes (Hospitalization, Other)
  Sender: FDA-Public Use
  Company Number: 233164J10USA

PATIENT
  Age: 58 Year
  Sex: Female
  Weight: 95 kg

DRUGS (4)
  1. REBIF [Suspect]
     Indication: MULTIPLE SCLEROSIS
     Dosage: SEE IMAGE INTRAVENOUS
     Route: 058
     Dates: start: 20100201, end: 20100101
  2. REBIF [Suspect]
     Indication: MULTIPLE SCLEROSIS
     Dosage: SEE IMAGE INTRAVENOUS
     Route: 058
     Dates: start: 20100205, end: 20100201
  3. REBIF [Suspect]
     Indication: MULTIPLE SCLEROSIS
     Dosage: SEE IMAGE INTRAVENOUS
     Route: 058
     Dates: start: 20100301, end: 20100402
  4. REBIF [Suspect]
     Indication: MULTIPLE SCLEROSIS
     Dosage: SEE IMAGE INTRAVENOUS
     Route: 058
     Dates: start: 20100401

REACTIONS (5)
  - COLITIS [None]
  - DEVICE LEAKAGE [None]
  - DIVERTICULAR PERFORATION [None]
  - DIVERTICULITIS [None]
  - IMPAIRED HEALING [None]
